FAERS Safety Report 8971251 (Version 2)
Quarter: 2013Q1

REPORT INFORMATION
  Report Type: Spontaneous
  Country: MA (occurrence: MA)
  Receive Date: 20121217
  Receipt Date: 20130124
  Transmission Date: 20140127
  Serious: Yes (Life-Threatening)
  Sender: FDA-Public Use
  Company Number: MA-GLAXOSMITHKLINE-B0852139A

PATIENT
  Age: 73 Year
  Sex: Female

DRUGS (3)
  1. ZELITREX [Suspect]
     Indication: OPHTHALMIC HERPES ZOSTER
     Dosage: 1000MG TWICE PER DAY
     Route: 048
  2. ARTANE [Concomitant]
     Indication: PARKINSON^S DISEASE
  3. ANTIPARKINSONIAN AGENT [Concomitant]

REACTIONS (4)
  - Bone marrow failure [Recovered/Resolved]
  - Leukopenia [Recovered/Resolved]
  - Thrombocytopenia [Recovered/Resolved]
  - Red blood cell count decreased [Recovered/Resolved]
